FAERS Safety Report 21613437 (Version 3)
Quarter: 2023Q1

REPORT INFORMATION
  Report Type: Spontaneous
  Country: GB (occurrence: GB)
  Receive Date: 20221118
  Receipt Date: 20230106
  Transmission Date: 20230417
  Serious: Yes (Death, Hospitalization, Other)
  Sender: FDA-Public Use
  Company Number: GB-JNJFOC-20221123717

PATIENT
  Age: 62 Year
  Sex: Female
  Weight: 30 kg

DRUGS (1)
  1. ACETAMINOPHEN [Suspect]
     Active Substance: ACETAMINOPHEN
     Indication: Product used for unknown indication
     Route: 065

REACTIONS (5)
  - Hepatic failure [Fatal]
  - Renal failure [Fatal]
  - Medication error [Fatal]
  - Accidental overdose [Fatal]
  - Product label issue [Fatal]

NARRATIVE: CASE EVENT DATE: 20220101
